FAERS Safety Report 7228081-0 (Version None)
Quarter: 2011Q1

REPORT INFORMATION
  Report Type: 
  Country: None (occurrence: None)
  Receive Date: 20110112
  Receipt Date: 20110112
  Transmission Date: 20110831
  Serious: Yes (Disabling)
  Sender: FDA-Public Use
  Company Number: None

PATIENT
  Sex: Female
  Weight: 53.5244 kg

DRUGS (1)
  1. PROPOXYPHEN APAP 100-650 MG. FOR PAIN [Suspect]
     Indication: BACK DISORDER
     Dates: start: 20101024

REACTIONS (3)
  - ANGINA PECTORIS [None]
  - BACK DISORDER [None]
  - CHEST PAIN [None]
